FAERS Safety Report 23171268 (Version 6)
Quarter: 2023Q4

REPORT INFORMATION
  Report Type: Report from Study
  Country: US (occurrence: US)
  Receive Date: 20231110
  Receipt Date: 20231226
  Transmission Date: 20240109
  Serious: Yes (Hospitalization, Other)
  Sender: FDA-Public Use
  Company Number: US-JNJFOC-20230868418

PATIENT
  Age: 63 Year
  Sex: Male
  Weight: 90.9 kg

DRUGS (26)
  1. SELEXIPAG [Suspect]
     Active Substance: SELEXIPAG
     Indication: Pulmonary arterial hypertension
     Route: 048
  2. SELEXIPAG [Suspect]
     Active Substance: SELEXIPAG
     Route: 048
  3. SELEXIPAG [Suspect]
     Active Substance: SELEXIPAG
     Route: 048
  4. SELEXIPAG [Suspect]
     Active Substance: SELEXIPAG
     Dosage: EXPIRY DATE: 31-AUG-2025
     Route: 048
  5. TYVASO [Suspect]
     Active Substance: TREPROSTINIL
     Indication: Pulmonary arterial hypertension
     Dosage: 24 UG(FOUR BREATHS), FOUR TIMES A DAY
     Route: 055
  6. TYVASO [Suspect]
     Active Substance: TREPROSTINIL
     Dosage: 24 UG(FOUR BREATHS), FOUR TIMES A DAY
     Route: 055
  7. TYVASO [Suspect]
     Active Substance: TREPROSTINIL
     Route: 055
     Dates: start: 20220510
  8. TADALAFIL [Concomitant]
     Active Substance: TADALAFIL
  9. OPSUMIT [Concomitant]
     Active Substance: MACITENTAN
  10. JARDIANCE [Concomitant]
     Active Substance: EMPAGLIFLOZIN
  11. SPIRONOLACTONE [Concomitant]
     Active Substance: SPIRONOLACTONE
  12. LANTUS [Concomitant]
     Active Substance: INSULIN GLARGINE
  13. LASIX [Concomitant]
     Active Substance: FUROSEMIDE
  14. ATORVASTATIN [Concomitant]
     Active Substance: ATORVASTATIN
  15. THIAMINE HYDROCHLORIDE [Concomitant]
     Active Substance: THIAMINE HYDROCHLORIDE
  16. GABAPENTIN [Concomitant]
     Active Substance: GABAPENTIN
  17. LACTULOSE [Concomitant]
     Active Substance: LACTULOSE
  18. TAMSULOSIN [Concomitant]
     Active Substance: TAMSULOSIN
  19. NOVOLOG [Concomitant]
     Active Substance: INSULIN ASPART
  20. XIFAXAN [Concomitant]
     Active Substance: RIFAXIMIN
  21. METOLAZONE [Concomitant]
     Active Substance: METOLAZONE
  22. MUPIROCIN [Concomitant]
     Active Substance: MUPIROCIN
  23. DOXYCYCLINE [Concomitant]
     Active Substance: DOXYCYCLINE
  24. FOLIC ACID [Concomitant]
     Active Substance: FOLIC ACID
  25. VITAMIN B-1 [THIAMINE MONONITRATE] [Concomitant]
  26. AMBRISENTAN [Concomitant]
     Active Substance: AMBRISENTAN

REACTIONS (23)
  - Chronic hepatic failure [Unknown]
  - Dyspnoea [Not Recovered/Not Resolved]
  - Fluid retention [Unknown]
  - Pleural effusion [Unknown]
  - Pain in extremity [Recovering/Resolving]
  - Headache [Recovering/Resolving]
  - Arthralgia [Unknown]
  - Flushing [Unknown]
  - Pain in jaw [Unknown]
  - Nausea [Unknown]
  - Vomiting [Unknown]
  - Pain [Unknown]
  - Muscle spasms [Unknown]
  - Muscle spasms [Unknown]
  - Off label use [Unknown]
  - Drug intolerance [Unknown]
  - Hypervolaemia [Unknown]
  - Paraesthesia [Recovering/Resolving]
  - Abdominal distension [Unknown]
  - Urine output decreased [Unknown]
  - Frequent bowel movements [Unknown]
  - Abnormal weight gain [Unknown]
  - Enteritis [Unknown]

NARRATIVE: CASE EVENT DATE: 20231120
